FAERS Safety Report 7142805-2 (Version None)
Quarter: 2010Q4

REPORT INFORMATION
  Report Type: 
  Country: None (occurrence: None)
  Receive Date: 20101207
  Receipt Date: 20101201
  Transmission Date: 20110411
  Serious: Yes (Death, Other)
  Sender: FDA-Public Use
  Company Number: US-AMGEN-USASP2010003254

PATIENT

DRUGS (3)
  1. NPLATE [Suspect]
     Indication: IDIOPATHIC THROMBOCYTOPENIC PURPURA
     Dosage: 350 A?G, UNK
     Dates: start: 20100206, end: 20100308
  2. NPLATE [Suspect]
     Dates: start: 20100122
  3. NPLATE [Suspect]
     Dates: start: 20100122

REACTIONS (4)
  - DEATH [None]
  - DRUG INEFFECTIVE [None]
  - PLATELET COUNT ABNORMAL [None]
  - THERAPEUTIC RESPONSE DECREASED [None]
